FAERS Safety Report 8448171-4 (Version None)
Quarter: 2012Q2

REPORT INFORMATION
  Report Type: 
  Country: None (occurrence: None)
  Receive Date: 20120613
  Receipt Date: 20120605
  Transmission Date: 20120825
  Serious: Yes (Other)
  Sender: FDA-Public Use
  Company Number: ADR-2012-00907

PATIENT
  Sex: Male

DRUGS (4)
  1. BACLOFEN [Suspect]
     Indication: BACK PAIN
  2. BACLOFEN [Suspect]
     Indication: PAIN
  3. HYDROMORPHONE HCL [Concomitant]
  4. BUPIVACAINE HCL [Concomitant]

REACTIONS (5)
  - CARDIAC DISORDER [None]
  - RESPIRATORY DEPRESSION [None]
  - SEDATION [None]
  - INCORRECT DOSE ADMINISTERED BY DEVICE [None]
  - OVERDOSE [None]
